FAERS Safety Report 25168298 (Version 1)
Quarter: 2025Q2

REPORT INFORMATION
  Report Type: Spontaneous
  Country: US (occurrence: US)
  Receive Date: 20250407
  Receipt Date: 20250407
  Transmission Date: 20250717
  Serious: Yes (Hospitalization)
  Sender: CORCEPT
  Company Number: US-CORCEPT THERAPEUTICS INC.-US-2025CRT000554

PATIENT

DRUGS (2)
  1. KORLYM [Suspect]
     Active Substance: MIFEPRISTONE
     Indication: Product used for unknown indication
     Route: 065
     Dates: end: 202412
  2. KORLYM [Suspect]
     Active Substance: MIFEPRISTONE
     Route: 065
     Dates: start: 202412

REACTIONS (2)
  - Hypoglycaemia [Unknown]
  - Renal disorder [Unknown]
